FAERS Safety Report 6857116-X (Version None)
Quarter: 2010Q3

REPORT INFORMATION
  Report Type: 
  Country: None (occurrence: None)
  Receive Date: 20100719
  Receipt Date: 20100709
  Transmission Date: 20110219
  Serious: Yes (Hospitalization)
  Sender: FDA-Public Use
  Company Number: B0664596A

PATIENT
  Sex: Female

DRUGS (8)
  1. DEROXAT [Suspect]
     Indication: PRODUCT USED FOR UNKNOWN INDICATION
     Dosage: 20MG PER DAY
     Route: 048
  2. COUMADIN [Suspect]
     Indication: CEREBROVASCULAR ACCIDENT
     Dosage: 1MG PER DAY
     Route: 048
     Dates: start: 20100525, end: 20100529
  3. TARDYFERON [Concomitant]
     Route: 048
  4. FORLAX [Concomitant]
     Route: 065
  5. SPECIAFOLDINE [Concomitant]
     Route: 065
  6. PARACETAMOL [Concomitant]
     Route: 065
  7. VITAMINE B12 [Concomitant]
     Route: 065
  8. ATARAX [Concomitant]
     Dosage: 25MG UNKNOWN
     Route: 065

REACTIONS (6)
  - AGITATION [None]
  - FUNGATING WOUND [None]
  - IMPAIRED HEALING [None]
  - NECROSIS [None]
  - SUBCUTANEOUS HAEMATOMA [None]
  - WOUND SECRETION [None]
